FAERS Safety Report 8056118-8 (Version None)
Quarter: 2012Q1

REPORT INFORMATION
  Report Type: 
  Country: None (occurrence: None)
  Receive Date: 20120119
  Receipt Date: 20120110
  Transmission Date: 20120608
  Serious: Yes (Death, Hospitalization)
  Sender: FDA-Public Use
  Company Number: US-JNJFOC-20110511541

PATIENT
  Sex: Female
  Weight: 195.05 kg

DRUGS (13)
  1. INSULIN [Concomitant]
     Route: 058
  2. STELARA [Suspect]
     Indication: PSORIASIS
     Route: 058
     Dates: start: 20101122
  3. STELARA [Suspect]
     Route: 058
     Dates: start: 20100822
  4. MOTRIN [Concomitant]
  5. STELARA [Suspect]
     Route: 058
     Dates: start: 20100720
  6. RISPERDAL [Concomitant]
  7. LAMICTAL [Concomitant]
  8. SYNTHROID [Concomitant]
  9. COLCHICINE [Concomitant]
     Route: 048
  10. STELARA [Suspect]
     Route: 058
     Dates: start: 20110222
  11. GLUCOPHAGE [Concomitant]
  12. LANTUS [Concomitant]
     Route: 058
  13. EFFEXOR [Concomitant]

REACTIONS (9)
  - GANGRENE [None]
  - CELLULITIS [None]
  - SEPTIC SHOCK [None]
  - NAUSEA [None]
  - STREPTOCOCCAL INFECTION [None]
  - HAEMORRHAGE [None]
  - SOMNOLENCE [None]
  - FURUNCLE [None]
  - HEADACHE [None]
